FAERS Safety Report 6059518-0 (Version None)
Quarter: 2009Q1

REPORT INFORMATION
  Report Type: 
  Country: None (occurrence: None)
  Receive Date: 20090130
  Receipt Date: 20090119
  Transmission Date: 20090719
  Serious: Yes (Hospitalization)
  Sender: FDA-Public Use
  Company Number: DE-ELI_LILLY_AND_COMPANY-DE200812005169

PATIENT
  Age: 8 Year
  Sex: Male
  Weight: 22 kg

DRUGS (4)
  1. STRATTERA [Suspect]
     Indication: ATTENTION DEFICIT/HYPERACTIVITY DISORDER
     Dosage: UNK, UNKNOWN
     Route: 065
     Dates: start: 20070401, end: 20080101
  2. STRATTERA [Suspect]
     Dosage: 40 MG, DAILY (1/D)
     Route: 048
     Dates: start: 20080101
  3. STRATTERA [Suspect]
     Dosage: 40 MG, UNKNOWN
     Route: 065
     Dates: start: 20080601
  4. STRATTERA [Suspect]
     Dosage: 10 MG, DAILY (1/D)
     Route: 065

REACTIONS (4)
  - GASTROENTERITIS [None]
  - KAWASAKI'S DISEASE [None]
  - RASH [None]
  - SYNCOPE [None]
